FAERS Safety Report 13565502 (Version 1)
Quarter: 2017Q2

REPORT INFORMATION
  Report Type: Spontaneous
  Country: CN (occurrence: CN)
  Receive Date: 20170519
  Receipt Date: 20170519
  Transmission Date: 20170830
  Serious: Yes (Hospitalization)
  Sender: FDA-Public Use
  Company Number: CN-VISTAPHARM, INC.-VER201705-000053

PATIENT
  Age: 31 Year
  Sex: Male

DRUGS (1)
  1. VALPROIC ACID. [Suspect]
     Active Substance: VALPROIC ACID
     Indication: SEIZURE
     Route: 048

REACTIONS (2)
  - Hyperammonaemic encephalopathy [Recovering/Resolving]
  - Generalised tonic-clonic seizure [Recovered/Resolved]
